FAERS Safety Report 17281642 (Version 1)
Quarter: 2020Q1

REPORT INFORMATION
  Report Type: Spontaneous
  Country: ES (occurrence: ES)
  Receive Date: 20200117
  Receipt Date: 20200117
  Transmission Date: 20200409
  Serious: Yes (Other)
  Sender: FDA-Public Use
  Company Number: ES-AUROBINDO-AUR-APL-2020-003003

PATIENT
  Age: 84 Year
  Sex: Male

DRUGS (2)
  1. DARBEPOETINA ALFA [Concomitant]
     Indication: ANAEMIA
     Dosage: 40 MICROGRAM, EVERY 15 DAYS
     Route: 042
     Dates: start: 20190531
  2. LOSARTAN FILM-COATED TABLETS 50MG [Suspect]
     Active Substance: LOSARTAN
     Indication: HYPERTENSION
     Dosage: 50 MILLIGRAM, ONCE A DAY
     Route: 048
     Dates: start: 20180915

REACTIONS (1)
  - Hyperkalaemia [Recovered/Resolved]

NARRATIVE: CASE EVENT DATE: 20191203
